FAERS Safety Report 24443646 (Version 2)
Quarter: 2024Q4

REPORT INFORMATION
  Report Type: Report from Study
  Country: CA (occurrence: CA)
  Receive Date: 20241016
  Receipt Date: 20241017
  Transmission Date: 20250115
  Serious: No
  Sender: ROCHE
  Company Number: CA-ROCHE-1594941

PATIENT
  Age: 49 Year
  Sex: Female
  Weight: 54.4 kg

DRUGS (8)
  1. RITUXAN [Suspect]
     Active Substance: RITUXIMAB
     Indication: Rheumatoid arthritis
     Route: 042
     Dates: start: 20140203, end: 2014
  2. RITUXAN [Suspect]
     Active Substance: RITUXIMAB
     Dosage: LIQUID
     Route: 042
     Dates: start: 20190401, end: 20190401
  3. RITUXAN [Suspect]
     Active Substance: RITUXIMAB
     Dosage: ONGOING, MORE DOSAGE INFO DAY 1, 15
     Route: 042
     Dates: start: 20140217
  4. RITUXAN [Suspect]
     Active Substance: RITUXIMAB
     Route: 042
  5. DIPHENHYDRAMINE HYDROCHLORIDE [Concomitant]
     Active Substance: DIPHENHYDRAMINE HYDROCHLORIDE
     Indication: Premedication
     Route: 048
     Dates: start: 20140203
  6. ACETAMINOPHEN [Concomitant]
     Active Substance: ACETAMINOPHEN
     Indication: Premedication
     Route: 048
     Dates: start: 20140203
  7. METHYLPREDNISOLONE [Concomitant]
     Active Substance: METHYLPREDNISOLONE
     Indication: Premedication
     Route: 042
     Dates: start: 20140203
  8. VIMOVO [Concomitant]
     Active Substance: ESOMEPRAZOLE MAGNESIUM\NAPROXEN

REACTIONS (11)
  - Pruritus [Recovered/Resolved]
  - Throat tightness [Recovered/Resolved]
  - Ear discomfort [Recovered/Resolved]
  - Heart rate decreased [Unknown]
  - Pharyngitis streptococcal [Not Recovered/Not Resolved]
  - Paraesthesia oral [Recovered/Resolved]
  - Hypersensitivity [Unknown]
  - Vulvovaginal inflammation [Unknown]
  - B-lymphocyte count decreased [Unknown]
  - Vulvovaginal inflammation [Unknown]
  - Infusion related reaction [Unknown]

NARRATIVE: CASE EVENT DATE: 20140615
